FAERS Safety Report 9562815 (Version 4)
Quarter: 2014Q1

REPORT INFORMATION
  Report Type: Spontaneous
  Country: FR (occurrence: FR)
  Receive Date: 20130927
  Receipt Date: 20140120
  Transmission Date: 20141002
  Serious: Yes (Hospitalization, Other)
  Sender: FDA-Public Use
  Company Number: FR-BAXTER-2013BAX037182

PATIENT
  Age: 20 Year
  Sex: Female

DRUGS (29)
  1. ENDOXAN 2000 MG, LYOPHILISAT POUR SOLUTION INJECTABLE [Suspect]
     Indication: PRODUCT USED FOR UNKNOWN INDICATION
     Route: 065
     Dates: start: 20130715
  2. ENDOXAN 2000 MG, LYOPHILISAT POUR SOLUTION INJECTABLE [Suspect]
     Route: 065
     Dates: start: 201310
  3. UROMITEXAN 1 G/10 ML, SOLUTION INJECTABLE POUR PERFUSION EN FLACON [Suspect]
     Indication: PRODUCT USED FOR UNKNOWN INDICATION
     Route: 042
     Dates: start: 20130715
  4. ACLOTINE [Suspect]
     Indication: PRODUCT USED FOR UNKNOWN INDICATION
     Dosage: 100 IU/ML
     Route: 042
     Dates: start: 20130703
  5. ACUPAN [Suspect]
     Indication: PAIN
     Dosage: 1 VIAL
     Route: 042
     Dates: start: 20130625
  6. BACTRIM FORTE [Suspect]
     Indication: ACUTE LYMPHOCYTIC LEUKAEMIA
     Route: 048
     Dates: start: 20130625, end: 20130718
  7. CERUBIDINE [Suspect]
     Indication: ACUTE LYMPHOCYTIC LEUKAEMIA
     Route: 042
     Dates: start: 20130701
  8. CERUBIDINE [Suspect]
     Route: 042
     Dates: start: 20130708
  9. CERUBIDINE [Suspect]
     Route: 042
     Dates: start: 20130715
  10. CERUBIDINE [Suspect]
     Route: 042
     Dates: start: 20130723
  11. CERUBIDINE [Suspect]
     Route: 042
     Dates: start: 201310
  12. INEXIUM [Suspect]
     Indication: PRODUCT USED FOR UNKNOWN INDICATION
     Route: 065
     Dates: start: 20130625
  13. L ASPARAGINASE [Suspect]
     Indication: ACUTE LYMPHOCYTIC LEUKAEMIA
     Route: 042
     Dates: start: 20130701
  14. L ASPARAGINASE [Suspect]
     Route: 042
     Dates: start: 20130703
  15. L ASPARAGINASE [Suspect]
     Route: 042
     Dates: start: 20130705
  16. L ASPARAGINASE [Suspect]
     Route: 042
     Dates: start: 20130708
  17. L ASPARAGINASE [Suspect]
     Route: 042
     Dates: start: 20130710
  18. L ASPARAGINASE [Suspect]
     Route: 042
     Dates: start: 20130723
  19. L ASPARAGINASE [Suspect]
     Route: 042
     Dates: start: 201310
  20. LUTERAN [Suspect]
     Indication: PRODUCT USED FOR UNKNOWN INDICATION
     Route: 048
     Dates: start: 20130625
  21. PREDNISONE [Suspect]
     Indication: ACUTE LYMPHOCYTIC LEUKAEMIA
     Route: 048
     Dates: start: 20130624
  22. VINCRISTINE SULFATE [Suspect]
     Indication: ACUTE LYMPHOCYTIC LEUKAEMIA
     Route: 042
     Dates: start: 20130701
  23. VINCRISTINE SULFATE [Suspect]
     Route: 042
     Dates: start: 20130708
  24. VINCRISTINE SULFATE [Suspect]
     Route: 042
     Dates: start: 20130715
  25. VINCRISTINE SULFATE [Suspect]
     Route: 042
     Dates: start: 20130723
  26. VITAMIN K1 [Suspect]
     Indication: PRODUCT USED FOR UNKNOWN INDICATION
     Dosage: 1 VIAL
     Route: 065
     Dates: start: 20130703
  27. ZELITREX [Suspect]
     Indication: INFECTION
     Route: 048
     Dates: start: 20130625
  28. ONDANSETRON [Suspect]
     Indication: PROPHYLAXIS OF NAUSEA AND VOMITING
     Route: 065
     Dates: start: 20130701
  29. PENTACARINAT [Concomitant]
     Indication: PRODUCT USED FOR UNKNOWN INDICATION
     Route: 065

REACTIONS (2)
  - Cholestasis [Recovered/Resolved]
  - Hepatocellular injury [Recovered/Resolved]
